FAERS Safety Report 21081059 (Version 1)
Quarter: 2022Q3

REPORT INFORMATION
  Report Type: Spontaneous
  Country: US (occurrence: None)
  Receive Date: 20220713
  Receipt Date: 20220713
  Transmission Date: 20221026
  Serious: No
  Sender: FDA-Public Use
  Company Number: None

PATIENT
  Age: 76 Year
  Sex: Female

DRUGS (1)
  1. FORTEO [Suspect]
     Active Substance: TERIPARATIDE
     Dosage: OTHER STRENGTH : 600MCG / 2.4ML;?FREQUENCY : DAILY;?
     Route: 058
     Dates: start: 202201

REACTIONS (1)
  - Surgery [None]

NARRATIVE: CASE EVENT DATE: 20220620
